FAERS Safety Report 6142750-5 (Version None)
Quarter: 2009Q2

REPORT INFORMATION
  Report Type: 
  Country: None (occurrence: None)
  Receive Date: 20090403
  Receipt Date: 20090324
  Transmission Date: 20091009
  Serious: Yes (Hospitalization, Other)
  Sender: FDA-Public Use
  Company Number: PHHY2009MX11008

PATIENT
  Sex: Female

DRUGS (2)
  1. DIOVAN HCT [Suspect]
     Indication: HYPERTENSION
     Dosage: 1 TABLET (320 MG VALSARTAN/25 MG HYDROCHLOROTHIAZIDE) PER DAY
     Route: 048
  2. JANUVIA [Concomitant]

REACTIONS (5)
  - CATHETERISATION CARDIAC [None]
  - CHEST PAIN [None]
  - CORONARY ARTERY OCCLUSION [None]
  - ECHOCARDIOGRAM ABNORMAL [None]
  - PAIN [None]
